FAERS Safety Report 19717579 (Version 2)
Quarter: 2021Q3

REPORT INFORMATION
  Report Type: Spontaneous
  Country: IN (occurrence: IN)
  Receive Date: 20210818
  Receipt Date: 20210820
  Transmission Date: 20211014
  Serious: Yes (Other)
  Sender: FDA-Public Use
  Company Number: IN-SA-2021SA270572

PATIENT
  Age: 42 Year
  Sex: Male

DRUGS (1)
  1. THYMOGLOBULIN [Suspect]
     Active Substance: LAPINE T-LYMPHOCYTE IMMUNE GLOBULIN
     Route: 042
     Dates: start: 20210727, end: 20210727

REACTIONS (4)
  - Blood creatinine increased [Unknown]
  - Lymphocyte count decreased [Unknown]
  - Proteinuria [Unknown]
  - Transplant rejection [Unknown]

NARRATIVE: CASE EVENT DATE: 2021
